FAERS Safety Report 10483501 (Version 1)
Quarter: 2014Q3

REPORT INFORMATION
  Report Type: Spontaneous
  Country: US (occurrence: None)
  Receive Date: 20140929
  Receipt Date: 20140929
  Transmission Date: 20150326
  Serious: Yes (Other)
  Sender: FDA-Public Use
  Company Number: None

PATIENT
  Age: 79 Year
  Sex: Female
  Weight: 49.9 kg

DRUGS (1)
  1. XEOMIN [Suspect]
     Active Substance: INCOBOTULINUMTOXINA
     Indication: MUSCLE DISORDER
     Dates: start: 20140827

REACTIONS (5)
  - Pyrexia [None]
  - Paralysis [None]
  - Rash generalised [None]
  - Rash erythematous [None]
  - Arthritis [None]

NARRATIVE: CASE EVENT DATE: 20140827
